FAERS Safety Report 25164323 (Version 1)
Quarter: 2025Q2

REPORT INFORMATION
  Report Type: Spontaneous
  Country: US (occurrence: US)
  Receive Date: 20250405
  Receipt Date: 20250405
  Transmission Date: 20250716
  Serious: Yes (Other)
  Sender: ASPIRO PHARMA
  Company Number: US-ASPIRO-ASP2025US01624

PATIENT
  Age: 45 Year
  Sex: Male

DRUGS (1)
  1. NOREPINEPHRINE [Suspect]
     Active Substance: NOREPINEPHRINE
     Indication: Hypotension
     Route: 065

REACTIONS (1)
  - Arteriospasm coronary [Recovered/Resolved]
